FAERS Safety Report 23300172 (Version 1)
Quarter: 2023Q4

REPORT INFORMATION
  Report Type: Spontaneous
  Country: GR (occurrence: GR)
  Receive Date: 20231215
  Receipt Date: 20231215
  Transmission Date: 20240109
  Serious: Yes (Death, Hospitalization, Other)
  Sender: FDA-Public Use
  Company Number: GR-GILEAD-2023-0654592

PATIENT
  Age: 65 Year
  Sex: Male

DRUGS (4)
  1. REMDESIVIR [Suspect]
     Active Substance: REMDESIVIR
     Indication: Haemophagocytic lymphohistiocytosis
     Dosage: UNK
     Route: 065
  2. REMDESIVIR [Suspect]
     Active Substance: REMDESIVIR
     Indication: Multisystem inflammatory syndrome in adults
  3. DEXATON [DEXAMETHASONE SODIUM PHOSPHATE] [Concomitant]
  4. ANAKINRA [Concomitant]
     Active Substance: ANAKINRA

REACTIONS (3)
  - Septic shock [Fatal]
  - Drug ineffective [Unknown]
  - Off label use [Unknown]
